FAERS Safety Report 11212110 (Version 1)
Quarter: 2015Q2

REPORT INFORMATION
  Report Type: Spontaneous
  Country: DE (occurrence: DE)
  Receive Date: 20150623
  Receipt Date: 20150623
  Transmission Date: 20150821
  Serious: Yes (Disabling, Other)
  Sender: FDA-Public Use
  Company Number: GXKR2015DE002767

PATIENT
  Sex: Male

DRUGS (1)
  1. METOPROLOLSUCCINAT 1A PHARMA [Suspect]
     Active Substance: METOPROLOL SUCCINATE
     Indication: HYPERTENSION
     Dosage: 47.5 MG, QD, FOR ABOUT 5 MONTHS
     Route: 048

REACTIONS (2)
  - Activities of daily living impaired [Not Recovered/Not Resolved]
  - Feeling drunk [Not Recovered/Not Resolved]
